FAERS Safety Report 9158889 (Version 1)
Quarter: 2013Q1

REPORT INFORMATION
  Report Type: Spontaneous
  Country: US (occurrence: US)
  Receive Date: 20130313
  Receipt Date: 20130313
  Transmission Date: 20140127
  Serious: Yes (Hospitalization)
  Sender: FDA-Public Use
  Company Number: US-BIOGENIDEC-2013BI021959

PATIENT
  Age: 37 Year
  Sex: Female

DRUGS (3)
  1. TYSABRI [Suspect]
     Indication: MULTIPLE SCLEROSIS
     Route: 042
     Dates: start: 20120802
  2. BETA BLOCKER [Concomitant]
     Indication: AUTONOMIC NERVOUS SYSTEM IMBALANCE
  3. FENTANYL PATCH [Concomitant]
     Indication: NEURALGIA

REACTIONS (8)
  - Cardiac arrest [Recovered/Resolved]
  - Pyrexia [Recovered/Resolved]
  - Loss of consciousness [Recovered/Resolved]
  - Mineral deficiency [Recovered/Resolved]
  - Dehydration [Recovered/Resolved]
  - Abasia [Recovered/Resolved]
  - Weight decreased [Unknown]
  - Hypersomnia [Recovered/Resolved]
